FAERS Safety Report 19120788 (Version 1)
Quarter: 2021Q2

REPORT INFORMATION
  Report Type: Spontaneous
  Country: AU (occurrence: AU)
  Receive Date: 20210412
  Receipt Date: 20210412
  Transmission Date: 20210717
  Serious: Yes (Life-Threatening)
  Sender: FDA-Public Use
  Company Number: NVSC2021AU080343

PATIENT
  Sex: Male
  Weight: 50 kg

DRUGS (4)
  1. PARACETAMOL [Concomitant]
     Active Substance: ACETAMINOPHEN
     Indication: PREMEDICATION
     Dosage: 15 MG/KG
     Route: 048
     Dates: start: 20210128, end: 20210128
  2. OFATUMUMAB [Suspect]
     Active Substance: OFATUMUMAB
     Indication: NEPHROTIC SYNDROME
     Dosage: 230 MG
     Route: 042
     Dates: start: 20210128
  3. PROMETHAZINE [Concomitant]
     Active Substance: PROMETHAZINE HYDROCHLORIDE
     Indication: PREMEDICATION
     Dosage: 0.24 MG/KG
     Route: 042
     Dates: start: 20210128, end: 20210128
  4. METHYLPREDNISOLON [Concomitant]
     Active Substance: METHYLPREDNISOLONE
     Indication: PREMEDICATION
     Dosage: 2 MG/KG
     Route: 042
     Dates: start: 20210128, end: 20210128

REACTIONS (5)
  - Wheezing [Recovered/Resolved]
  - Rash [Recovered/Resolved]
  - Lip swelling [Recovered/Resolved]
  - Urticaria [Recovered/Resolved]
  - Aggression [Recovered/Resolved]
